FAERS Safety Report 9915837 (Version 1)
Quarter: 2014Q1

REPORT INFORMATION
  Report Type: Spontaneous
  Country: DE (occurrence: None)
  Receive Date: 20140218
  Receipt Date: 20140218
  Transmission Date: 20141002
  Serious: Yes (Other)
  Sender: FDA-Public Use
  Company Number: KAD201402-000174

PATIENT
  Age: 62 Year
  Sex: Female

DRUGS (3)
  1. RIBAVIRIN [Suspect]
     Indication: HEPATITIS C
  2. PEGINTERFERON [Suspect]
     Indication: HEPATITIS C
  3. TELAPREVIR [Suspect]
     Indication: HEPATITIS C

REACTIONS (5)
  - Gastroenteritis rotavirus [None]
  - Clostridium difficile infection [None]
  - Enteritis [None]
  - Escherichia urinary tract infection [None]
  - Candida infection [None]
